FAERS Safety Report 16891518 (Version 4)
Quarter: 2019Q4

REPORT INFORMATION
  Report Type: Spontaneous
  Country: FI (occurrence: FI)
  Receive Date: 20191007
  Receipt Date: 20191030
  Transmission Date: 20200122
  Serious: Yes (Death, Other)
  Sender: FDA-Public Use
  Company Number: FI-009507513-1910FIN004771

PATIENT
  Sex: Male

DRUGS (1)
  1. DIPROSALIC [Suspect]
     Active Substance: BETAMETHASONE DIPROPIONATE
     Indication: PSORIASIS
     Dosage: UNK

REACTIONS (3)
  - Overdose [Fatal]
  - Completed suicide [Fatal]
  - Product availability issue [Unknown]

NARRATIVE: CASE EVENT DATE: 2007
